FAERS Safety Report 5193579-6 (Version None)
Quarter: 2006Q4

REPORT INFORMATION
  Report Type: 
  Country: None (occurrence: None)
  Receive Date: 20061228
  Receipt Date: 20060912
  Transmission Date: 20070319
  Serious: No
  Sender: FDA-Public Use
  Company Number: US-GLAXOSMITHKLINE-A0619891A

PATIENT
  Age: 64 Year
  Sex: Male

DRUGS (7)
  1. FLONASE [Suspect]
     Route: 045
  2. ASPIRIN [Concomitant]
  3. DIOVAN [Concomitant]
  4. TOPROL-XL [Concomitant]
  5. LIPITOR [Concomitant]
  6. NYSTATIN [Concomitant]
  7. COLCHICINE [Concomitant]

REACTIONS (1)
  - ORAL SOFT TISSUE DISORDER [None]
